FAERS Safety Report 8233173-3 (Version None)
Quarter: 2012Q1

REPORT INFORMATION
  Report Type: 
  Country: None (occurrence: None)
  Receive Date: 20120326
  Receipt Date: 20120319
  Transmission Date: 20120608
  Serious: Yes (Other)
  Sender: FDA-Public Use
  Company Number: US-PFIZER INC-2012071470

PATIENT
  Sex: Male
  Weight: 81.633 kg

DRUGS (6)
  1. SYNTHROID [Concomitant]
     Indication: THYROID CANCER
     Dosage: 0.150 MG, DAILY
  2. PROPECIA [Concomitant]
     Indication: HAIR DISORDER
     Dosage: 2.5 MG, DAILY
  3. HYDROCHLOROTHIAZIDE [Concomitant]
     Indication: HYPERTENSION
     Dosage: 12.5 MG, DAILY
  4. VIAGRA [Suspect]
     Dosage: 100 MG, AS NEEDED
  5. MULTI-VITAMINS [Concomitant]
     Dosage: UNK
  6. VIAGRA [Suspect]
     Indication: ERECTILE DYSFUNCTION
     Dosage: 50 MG, AS NEEDED

REACTIONS (4)
  - DRUG EFFECT DELAYED [None]
  - PERIORBITAL OEDEMA [None]
  - OCULAR HYPERAEMIA [None]
  - DRUG INEFFECTIVE [None]
